FAERS Safety Report 5828212-0 (Version None)
Quarter: 2008Q3

REPORT INFORMATION
  Report Type: 
  Country: None (occurrence: None)
  Receive Date: 20080729
  Receipt Date: 20080718
  Transmission Date: 20090109
  Serious: Yes (Life-Threatening, Hospitalization, Disabling)
  Sender: FDA-Public Use
  Company Number: 163-21880-07090863

PATIENT
  Age: 82 Year
  Sex: Female

DRUGS (3)
  1. REVLIMID [Suspect]
     Indication: MYELODYSPLASTIC SYNDROME
     Dosage: 25 MG, QD, ORAL; 5 MG, 1 IN 1 D, ORAL
     Route: 048
     Dates: start: 20071201, end: 20080101
  2. REVLIMID [Suspect]
     Indication: MYELODYSPLASTIC SYNDROME
     Dosage: 25 MG, QD, ORAL; 5 MG, 1 IN 1 D, ORAL
     Route: 048
     Dates: start: 20070904
  3. ARANESP [Concomitant]

REACTIONS (4)
  - CEREBRAL VENOUS THROMBOSIS [None]
  - INTERNATIONAL NORMALISED RATIO INCREASED [None]
  - SINUS BRADYCARDIA [None]
  - SUPERIOR SAGITTAL SINUS THROMBOSIS [None]
